FAERS Safety Report 7149149-3 (Version None)
Quarter: 2010Q4

REPORT INFORMATION
  Report Type: 
  Country: None (occurrence: None)
  Receive Date: 20101209
  Receipt Date: 20101201
  Transmission Date: 20110411
  Serious: Yes (Other)
  Sender: FDA-Public Use
  Company Number: US-PURDUE-USA-2010-0054622

PATIENT
  Age: 56 Year
  Sex: Male

DRUGS (6)
  1. OXYCONTIN [Suspect]
     Indication: CHONDROPATHY
     Dosage: 20 MG, BID
     Route: 048
     Dates: start: 20100916
  2. COUMADIN [Concomitant]
     Indication: PRODUCT USED FOR UNKNOWN INDICATION
  3. OXYCODONE HCL [Concomitant]
     Indication: PRODUCT USED FOR UNKNOWN INDICATION
     Dosage: 0.5 MG, UNK
     Route: 048
  4. ALPRAZOLAM [Concomitant]
     Indication: PRODUCT USED FOR UNKNOWN INDICATION
     Route: 048
  5. XANAX [Concomitant]
     Indication: PRODUCT USED FOR UNKNOWN INDICATION
     Route: 048
  6. ANTIDIARRHEAL [Concomitant]
     Indication: PRODUCT USED FOR UNKNOWN INDICATION

REACTIONS (6)
  - DRUG INEFFECTIVE [None]
  - INTENTIONAL DRUG MISUSE [None]
  - MEDICATION RESIDUE [None]
  - PAIN [None]
  - SUICIDAL IDEATION [None]
  - WEIGHT INCREASED [None]
